FAERS Safety Report 7210387-2 (Version None)
Quarter: 2011Q1

REPORT INFORMATION
  Report Type: 
  Country: None (occurrence: None)
  Receive Date: 20110105
  Receipt Date: 20101224
  Transmission Date: 20110831
  Serious: Yes (Hospitalization)
  Sender: FDA-Public Use
  Company Number: PHFR2010GB05723

PATIENT
  Sex: Male

DRUGS (2)
  1. PARACETAMOL [Suspect]
     Dosage: 30 TABLETS
     Dates: start: 20101201
  2. CLOZARIL [Suspect]
     Indication: SCHIZOPHRENIA
     Dosage: UNK
     Route: 048
     Dates: start: 19950307

REACTIONS (1)
  - ACUTE HEPATIC FAILURE [None]
